FAERS Safety Report 4300898-1 (Version None)
Quarter: 2004Q1

REPORT INFORMATION
  Report Type: 
  Country: None (occurrence: None)
  Receive Date: 20040218
  Receipt Date: 20031205
  Transmission Date: 20041129
  Serious: No
  Sender: FDA-Public Use
  Company Number: 2003-09-2859

PATIENT
  Age: 52 Year
  Sex: Male

DRUGS (2)
  1. PEG-INTRON [Suspect]
     Dosage: 150 MCG SUBCUTANEOUS
     Route: 058
     Dates: start: 20021201
  2. REBETOL [Suspect]
     Dosage: ORAL
     Route: 048
     Dates: start: 20021201

REACTIONS (1)
  - NONSPECIFIC REACTION [None]
